FAERS Safety Report 8362392 (Version 2)
Quarter: 2015Q1

REPORT INFORMATION
  Report Type: Report from Study
  Country: US (occurrence: US)
  Receive Date: 20120130
  Receipt Date: 20150303
  Transmission Date: 20150721
  Serious: Yes (Death, Hospitalization)
  Sender: FDA-Public Use
  Company Number: US-ROCHE-1034443

PATIENT
  Sex: Female

DRUGS (31)
  1. AVASTIN [Suspect]
     Active Substance: BEVACIZUMAB
     Dosage: 31/JAN/2008
     Route: 042
  2. XELODA [Suspect]
     Active Substance: CAPECITABINE
     Indication: PRODUCT USED FOR UNKNOWN INDICATION
     Route: 065
     Dates: start: 20061127
  3. LISINOPRIL. [Concomitant]
     Active Substance: LISINOPRIL
     Route: 065
  4. CYCLOPHOSPHAMIDE. [Concomitant]
     Active Substance: CYCLOPHOSPHAMIDE
     Route: 065
  5. AVASTIN [Suspect]
     Active Substance: BEVACIZUMAB
     Indication: BREAST CANCER FEMALE
     Dosage: 19/DEC/2006,
     Route: 042
     Dates: start: 20061127
  6. COREG [Concomitant]
     Active Substance: CARVEDILOL
     Route: 065
  7. DEXAMETHASONE. [Concomitant]
     Active Substance: DEXAMETHASONE
     Route: 042
  8. ABRAXANE [Concomitant]
     Active Substance: PACLITAXEL
  9. LAPATINIB [Concomitant]
     Active Substance: LAPATINIB
     Route: 048
  10. AVASTIN [Suspect]
     Active Substance: BEVACIZUMAB
     Dosage: 09/JUL/2007, 26/JUL/2007
     Route: 042
  11. HERCEPTIN [Suspect]
     Active Substance: TRASTUZUMAB
     Dosage: 01/NOV/2005, 15/NOV/2005, 29/NOV/2005
     Route: 042
  12. PALONOSETRON [Concomitant]
     Active Substance: PALONOSETRON
     Route: 042
  13. PEGFILGRASTIM [Concomitant]
     Active Substance: PEGFILGRASTIM
     Route: 065
  14. ARANESP [Concomitant]
     Active Substance: DARBEPOETIN ALFA
     Route: 065
  15. EPOETIN ALFA [Concomitant]
     Active Substance: ERYTHROPOIETIN
     Route: 065
  16. HERCEPTIN [Suspect]
     Active Substance: TRASTUZUMAB
     Dosage: 20/APR/2006, 10/MAY/2006, 30/MAY/2006
     Route: 042
  17. KEPPRA [Concomitant]
     Active Substance: LEVETIRACETAM
     Route: 065
  18. DOXORUBICIN [Concomitant]
     Active Substance: DOXORUBICIN
     Route: 065
  19. PACLITAXEL. [Concomitant]
     Active Substance: PACLITAXEL
     Route: 042
  20. HERCEPTIN [Suspect]
     Active Substance: TRASTUZUMAB
     Dosage: 21/SEP/,2005, 27/SEP/2005, 04/OCT/2005, 11/OCT/2005
     Route: 042
  21. HERCEPTIN [Suspect]
     Active Substance: TRASTUZUMAB
     Dosage: 13/DEC/2005, 20/DEC/2005, 28/DEC/2005, 06/JAN/2006, 25/JAN/2006, 01/FEB/2006, 08/FEB/2006, 15/FEB/20
     Route: 042
  22. ANZEMET [Concomitant]
     Active Substance: DOLASETRON MESYLATE
     Route: 065
  23. CIMETIDINE [Concomitant]
     Active Substance: CIMETIDINE
     Route: 065
  24. HERCEPTIN [Suspect]
     Active Substance: TRASTUZUMAB
     Indication: PRODUCT USED FOR UNKNOWN INDICATION
     Dosage: 13/SEP/2005
     Route: 042
  25. ZOFRAN [Concomitant]
     Active Substance: ONDANSETRON HYDROCHLORIDE
  26. DIPHENHYDRAMINE [Concomitant]
     Active Substance: DIPHENHYDRAMINE
     Route: 065
  27. HERCEPTIN [Suspect]
     Active Substance: TRASTUZUMAB
     Dosage: 18/OCT/2005
     Route: 042
  28. HERCEPTIN [Suspect]
     Active Substance: TRASTUZUMAB
     Dosage: 03/NOV/2006, 10/NOV/2006, 17/NOV/2006, 27/NOV/2006, 04/DEC/2006, 11/DEC/2006, 19/DEC/2006
     Route: 042
  29. CREON 10 MINIMICROSPHERES [Suspect]
     Active Substance: PANCRELIPASE AMYLASE\PANCRELIPASE LIPASE\PANCRELIPASE PROTEASE
     Indication: PRODUCT USED FOR UNKNOWN INDICATION
     Route: 065
  30. TYKERB [Concomitant]
     Active Substance: LAPATINIB DITOSYLATE
  31. TAXOL [Concomitant]
     Active Substance: PACLITAXEL
     Route: 065

REACTIONS (17)
  - Death [Fatal]
  - Pain [Unknown]
  - Metastases to liver [None]
  - Neoplasm recurrence [Unknown]
  - Rash [Unknown]
  - Pancreatitis [Recovering/Resolving]
  - Pyrexia [Unknown]
  - Scar [Unknown]
  - Nausea [Unknown]
  - Recurrent cancer [None]
  - Metastases to the mediastinum [None]
  - Abdominal pain [Unknown]
  - Fatigue [Unknown]
  - Metastases to retroperitoneum [None]
  - Incision site pain [None]
  - Back pain [Unknown]
  - Abdominal distension [Unknown]
